FAERS Safety Report 5179101-9 (Version None)
Quarter: 2006Q4

REPORT INFORMATION
  Report Type: 
  Country: None (occurrence: None)
  Receive Date: 20061214
  Receipt Date: 20061214
  Transmission Date: 20070319
  Serious: Yes (Hospitalization)
  Sender: FDA-Public Use
  Company Number: None

PATIENT
  Age: 84 Year
  Sex: Male
  Weight: 74.5 kg

DRUGS (9)
  1. MORPHINE [Suspect]
     Dosage: 15MG, Q12H, BY MOUTH
     Route: 048
     Dates: start: 20060809, end: 20060810
  2. PERPHENAZINE [Concomitant]
  3. SIMVASTATIN [Concomitant]
  4. CALCIUM CARBONATE [Concomitant]
  5. LISINOPRIL [Concomitant]
  6. FINASTERIDE [Concomitant]
  7. MULTI-VITAMIN [Concomitant]
  8. CLONAZEPAM [Concomitant]
  9. MECLIZINE HCL [Concomitant]

REACTIONS (3)
  - ASTHENIA [None]
  - DIZZINESS [None]
  - HYPOTENSION [None]
